FAERS Safety Report 8053145-1 (Version None)
Quarter: 2012Q1

REPORT INFORMATION
  Report Type: 
  Country: None (occurrence: None)
  Receive Date: 20120118
  Receipt Date: 20120112
  Transmission Date: 20120608
  Serious: Yes (Other)
  Sender: FDA-Public Use
  Company Number: US-PFIZER INC-2012010472

PATIENT
  Sex: Male
  Weight: 113 kg

DRUGS (1)
  1. ROBITUSSIN DM [Suspect]
     Dosage: UNK
     Route: 048
     Dates: start: 20040101

REACTIONS (3)
  - IRRITABILITY [None]
  - INTENTIONAL DRUG MISUSE [None]
  - DRUG DEPENDENCE [None]
